FAERS Safety Report 18522775 (Version 1)
Quarter: 2020Q4

REPORT INFORMATION
  Report Type: Spontaneous
  Country: US (occurrence: US)
  Receive Date: 20201119
  Receipt Date: 20201119
  Transmission Date: 20210114
  Serious: No
  Sender: FDA-Public Use
  Company Number: US-009507513-2011USA007134

PATIENT
  Sex: Female

DRUGS (1)
  1. NEXPLANON [Suspect]
     Active Substance: ETONOGESTREL
     Dosage: 1 IMPLANT IN LEFT ARM
     Dates: start: 20201007

REACTIONS (6)
  - Mood swings [Unknown]
  - Acne [Unknown]
  - Device placement issue [Unknown]
  - Pain in extremity [Unknown]
  - Pain [Unknown]
  - Metrorrhagia [Unknown]

NARRATIVE: CASE EVENT DATE: 2020
